FAERS Safety Report 4829415-4 (Version None)
Quarter: 2005Q4

REPORT INFORMATION
  Report Type: 
  Country: None (occurrence: None)
  Receive Date: 20051116
  Receipt Date: 20050922
  Transmission Date: 20060501
  Serious: Yes (Death, Hospitalization)
  Sender: FDA-Public Use
  Company Number: US-MERCK-0509USA03324

PATIENT
  Age: 87 Year
  Sex: Female
  Weight: 64 kg

DRUGS (14)
  1. VIOXX [Suspect]
     Indication: ARTHRALGIA
     Route: 048
     Dates: start: 20000125
  2. VIOXX [Suspect]
     Route: 048
     Dates: start: 20000125
  3. VIOXX [Suspect]
     Route: 048
     Dates: start: 20000125
  4. VIOXX [Suspect]
     Route: 048
     Dates: start: 20000125
  5. NORTRIPTYLINE [Concomitant]
     Route: 065
  6. COZAAR [Concomitant]
     Route: 048
  7. VERAPAMIL [Concomitant]
     Route: 065
  8. FUROSEMIDE [Concomitant]
     Route: 065
  9. NORVASC [Concomitant]
     Route: 065
  10. GENAPAP [Concomitant]
     Route: 065
  11. LOPERAMIDE HYDROCHLORIDE [Concomitant]
     Route: 065
  12. ACETAMINOPHEN [Concomitant]
     Route: 065
  13. ASPIRIN [Concomitant]
     Route: 065
  14. VITAMINS (UNSPECIFIED) [Concomitant]
     Route: 065

REACTIONS (2)
  - ADVERSE EVENT [None]
  - CEREBROVASCULAR ACCIDENT [None]
